FAERS Safety Report 13131307 (Version 1)
Quarter: 2017Q1

REPORT INFORMATION
  Report Type: Spontaneous
  Country: US (occurrence: US)
  Receive Date: 20170119
  Receipt Date: 20170119
  Transmission Date: 20170428
  Serious: Yes (Other)
  Sender: FDA-Public Use
  Company Number: US-PFIZER INC-2017022136

PATIENT
  Age: 44 Year
  Sex: Female
  Weight: 92.99 kg

DRUGS (2)
  1. PREMARIN [Suspect]
     Active Substance: ESTROGENS, CONJUGATED
     Indication: PREMATURE MENOPAUSE
     Dosage: 1.2 MG, DAILY(TAKING PREMARIN ONE 0.9MG TABLET AND ONE 0.3MG TABLET DAILY)
     Route: 048
     Dates: start: 2008
  2. PREMARIN [Suspect]
     Active Substance: ESTROGENS, CONJUGATED
     Dosage: 1.25 MG, 1X/DAY
     Route: 048
     Dates: start: 2013, end: 2013

REACTIONS (7)
  - Presyncope [Recovered/Resolved]
  - Chest discomfort [Recovered/Resolved]
  - Palpitations [Recovered/Resolved]
  - Drug administration error [Recovered/Resolved]
  - Cardiac disorder [Recovered/Resolved]
  - Drug dispensing error [Recovered/Resolved]
  - Dyspnoea [Recovered/Resolved]

NARRATIVE: CASE EVENT DATE: 2013
